FAERS Safety Report 23852361 (Version 1)
Quarter: 2024Q2

REPORT INFORMATION
  Report Type: Spontaneous
  Country: AT (occurrence: AT)
  Receive Date: 20240514
  Receipt Date: 20240514
  Transmission Date: 20240716
  Serious: Yes (Other)
  Sender: FDA-Public Use
  Company Number: AT-STRIDES ARCOLAB LIMITED-2024SP005523

PATIENT

DRUGS (6)
  1. PREDNISOLONE [Suspect]
     Active Substance: PREDNISOLONE
     Indication: Product used for unknown indication
     Dosage: UNK
     Route: 064
  2. TACROLIMUS [Suspect]
     Active Substance: TACROLIMUS
     Indication: Product used for unknown indication
     Dosage: UNK (THE PATIENT^S MOTHER RECEIVED IMMUNOSUPPRESSION THERAPY WITH TACROLIMUS DURING PREGNANCY FOR KI
     Route: 064
  3. AZATHIOPRINE [Suspect]
     Active Substance: AZATHIOPRINE
     Indication: Product used for unknown indication
     Dosage: UNK (THE PATIENT^S MOTHER RECEIVED IMMUNOSUPPRESSION THERAPY WITH AZATHIOPRINE DURING PREGNANCY FOR
     Route: 064
     Dates: start: 2021
  4. ECULIZUMAB [Suspect]
     Active Substance: ECULIZUMAB
     Indication: Product used for unknown indication
     Dosage: UNK (THE PATIENT^S MOTHER RECEIVED ECULIZUMAB 900?MG WEEKLY DURING PREGNANCY FOR TYPICAL HAEMOLYTIC
     Route: 064
  5. ECULIZUMAB [Suspect]
     Active Substance: ECULIZUMAB
     Dosage: UNK  (THE PATIENT^S MOTHER RECEIVED ECULIZUMAB 1200?MG EVERY 4?WEEKS DURING PREGNANCY FOR TYPICAL HA
     Route: 064
  6. ECULIZUMAB [Suspect]
     Active Substance: ECULIZUMAB
     Dosage: UNK  (THE PATIENT^S MOTHER RECEIVED ECULIZUMAB 1200?MG EVERY 2?WEEKS DURING PREGNANCY FOR TYPICAL HA
     Route: 064

REACTIONS (2)
  - Premature baby [Unknown]
  - Foetal exposure during pregnancy [Unknown]
